FAERS Safety Report 6977393-4 (Version None)
Quarter: 2010Q3

REPORT INFORMATION
  Report Type: 
  Country: None (occurrence: None)
  Receive Date: 20100910
  Receipt Date: 20100906
  Transmission Date: 20110219
  Serious: Yes (Hospitalization)
  Sender: FDA-Public Use
  Company Number: DE-AMGEN-US387153

PATIENT
  Sex: Female
  Weight: 67 kg

DRUGS (9)
  1. ENBREL [Suspect]
     Indication: RHEUMATOID ARTHRITIS
     Route: 058
     Dates: start: 20080130, end: 20100101
  2. PREDNISOLONE [Concomitant]
  3. CELEBREX [Concomitant]
  4. KATADOLON [Concomitant]
  5. VALORON N [Concomitant]
     Dosage: 150MG/12 MG ONE TIME PER ONE DAY
  6. FOLIC ACID [Concomitant]
  7. PANTOPRAZOLE SODIUM [Concomitant]
  8. LANTAREL [Concomitant]
     Dosage: FROM UNKN. DATE TO UNKN. DATE IN 03/04 15MG,THEN 20MG 1X1 WEEK + FROM 04/05 AGAIN 15MG,IN 2007 PAUSE
  9. ENALAPRIL MALEATE [Concomitant]
     Dosage: 5MG (FREQUENCY UNKNOWN)

REACTIONS (2)
  - HYPERCOAGULATION [None]
  - THROMBOSIS [None]
